FAERS Safety Report 11544656 (Version 2)
Quarter: 2015Q4

REPORT INFORMATION
  Report Type: Spontaneous
  Country: DE (occurrence: DE)
  Receive Date: 20150924
  Receipt Date: 20151110
  Transmission Date: 20160304
  Serious: Yes (Other)
  Sender: FDA-Public Use
  Company Number: DE-ASTELLAS-2015US034209

PATIENT
  Age: 7 Decade
  Sex: Female

DRUGS (1)
  1. VESIKUR [Suspect]
     Active Substance: SOLIFENACIN SUCCINATE
     Indication: MICTURITION URGENCY
     Dosage: 5 MG, ONCE DAILY (1X1)
     Route: 048
     Dates: start: 201507, end: 20150825

REACTIONS (8)
  - Dysgeusia [Recovering/Resolving]
  - Goitre [Unknown]
  - Sialoadenitis [Recovering/Resolving]
  - Dry mouth [Recovering/Resolving]
  - Vision blurred [Recovering/Resolving]
  - Lymphadenopathy [Unknown]
  - Osteochondrosis [Unknown]
  - Vertebral foraminal stenosis [Unknown]

NARRATIVE: CASE EVENT DATE: 201507
